FAERS Safety Report 11032356 (Version 1)
Quarter: 2015Q2

REPORT INFORMATION
  Report Type: Spontaneous
  Country: US (occurrence: None)
  Receive Date: 20150414
  Receipt Date: 20150414
  Transmission Date: 20150821
  Serious: Yes (Death)
  Sender: FDA-Public Use
  Company Number: 2015BV000006

PATIENT
  Age: 7 Year
  Sex: Male

DRUGS (5)
  1. ACETAMINOPHEN. [Suspect]
     Active Substance: ACETAMINOPHEN
     Indication: PYREXIA
  2. CEFTRIAXONE. [Suspect]
     Active Substance: CEFTRIAXONE
     Indication: BACTERAEMIA
  3. MONTELUKAST [Concomitant]
     Active Substance: MONTELUKAST SODIUM
  4. FENRETINIDE [Suspect]
     Active Substance: FENRETINIDE
  5. ONDANSETRON [Concomitant]
     Active Substance: ONDANSETRON

REACTIONS (9)
  - Drug interaction [None]
  - Hepatotoxicity [None]
  - Haemorrhage [None]
  - Acute hepatic failure [None]
  - Coagulopathy [None]
  - Cardiotoxicity [None]
  - Nephropathy toxic [None]
  - Toxicity to various agents [None]
  - Cholestasis [None]
